FAERS Safety Report 15340652 (Version 3)
Quarter: 2018Q4

REPORT INFORMATION
  Report Type: Spontaneous
  Country: DE (occurrence: DE)
  Receive Date: 20180831
  Receipt Date: 20180921
  Transmission Date: 20190204
  Serious: Yes (Other)
  Sender: FDA-Public Use
  Company Number: DE-TEVA-2018-DE-949232

PATIENT
  Age: 62 Year
  Sex: Female
  Weight: 70 kg

DRUGS (1)
  1. CIPROHEXAL (CIPROFLOXACIN) [Suspect]
     Active Substance: CIPROFLOXACIN
     Indication: ANTIBIOTIC PROPHYLAXIS
     Dosage: 500MG
     Route: 048
     Dates: start: 2017

REACTIONS (19)
  - Hallucination, visual [Recovered/Resolved]
  - Hypoacusis [Unknown]
  - Fatigue [Unknown]
  - Asthenia [Unknown]
  - Petechiae [Unknown]
  - Pulmonary embolism [Unknown]
  - Paraesthesia [Unknown]
  - Visual impairment [Unknown]
  - Pain in extremity [Not Recovered/Not Resolved]
  - Walking disability [Not Recovered/Not Resolved]
  - Walking aid user [Unknown]
  - Insomnia [Unknown]
  - Myalgia [Not Recovered/Not Resolved]
  - Tinnitus [Not Recovered/Not Resolved]
  - Myalgia [Unknown]
  - Hyperhidrosis [Unknown]
  - Thrombocytosis [Unknown]
  - Hot flush [Unknown]
  - Palpitations [Unknown]

NARRATIVE: CASE EVENT DATE: 2010
